FAERS Safety Report 16995229 (Version 2)
Quarter: 2020Q1

REPORT INFORMATION
  Report Type: Spontaneous
  Country: US (occurrence: US)
  Receive Date: 20191105
  Receipt Date: 20200107
  Transmission Date: 20200409
  Serious: Yes (Other)
  Sender: FDA-Public Use
  Company Number: US-PFIZER INC-2019476838

PATIENT
  Age: 67 Year
  Sex: Female

DRUGS (1)
  1. RAMIPRIL. [Suspect]
     Active Substance: RAMIPRIL
     Dosage: UNK

REACTIONS (6)
  - Heart rate increased [Unknown]
  - Respiratory rate increased [Unknown]
  - Disturbance in attention [Unknown]
  - Suicidal ideation [Unknown]
  - Tremor [Unknown]
  - Drug hypersensitivity [Unknown]
